FAERS Safety Report 5877384-0 (Version None)
Quarter: 2008Q3

REPORT INFORMATION
  Report Type: 
  Country: None (occurrence: None)
  Receive Date: 20080908
  Receipt Date: 20080825
  Transmission Date: 20090109
  Serious: Yes (Hospitalization)
  Sender: FDA-Public Use
  Company Number: WAES 0808FRA00039

PATIENT
  Age: 42 Year
  Sex: Female

DRUGS (2)
  1. ALDOMET [Suspect]
     Indication: HYPERTENSION
     Dosage: 500 MG/BID
     Route: 048
     Dates: start: 20080530, end: 20080722
  2. PREDNISONE [Concomitant]

REACTIONS (10)
  - BLOOD LACTATE DEHYDROGENASE INCREASED [None]
  - BRAIN NATRIURETIC PEPTIDE INCREASED [None]
  - CERVICAL ROOT PAIN [None]
  - CHEST PAIN [None]
  - CHILLS [None]
  - DRUG EXPOSURE VIA BREAST MILK [None]
  - DRUG RASH WITH EOSINOPHILIA AND SYSTEMIC SYMPTOMS [None]
  - MYOCARDITIS [None]
  - PERICARDIAL EFFUSION [None]
  - PYREXIA [None]
